FAERS Safety Report 6750194-8 (Version None)
Quarter: 2010Q2

REPORT INFORMATION
  Report Type: 
  Country: None (occurrence: None)
  Receive Date: 20100601
  Receipt Date: 20100520
  Transmission Date: 20101027
  Serious: Yes (Other)
  Sender: FDA-Public Use
  Company Number: CN-PFIZER INC-2010063753

PATIENT

DRUGS (2)
  1. DIFLUCAN [Suspect]
     Indication: INFECTION
     Route: 042
  2. CEFOPERAZONE SODIUM/SULBACTAM SODIUM [Concomitant]

REACTIONS (1)
  - PSYCHIATRIC SYMPTOM [None]
